FAERS Safety Report 8447495-4 (Version None)
Quarter: 2012Q2

REPORT INFORMATION
  Report Type: 
  Country: None (occurrence: None)
  Receive Date: 20120619
  Receipt Date: 20120614
  Transmission Date: 20120825
  Serious: Yes (Hospitalization)
  Sender: FDA-Public Use
  Company Number: PHHY2012CA051859

PATIENT
  Sex: Female

DRUGS (2)
  1. DILAUDID [Concomitant]
  2. EXJADE [Suspect]
     Indication: SICKLE CELL ANAEMIA
     Dosage: 1500 MG
     Route: 048

REACTIONS (3)
  - PAIN [None]
  - BLOOD POTASSIUM DECREASED [None]
  - SICKLE CELL ANAEMIA WITH CRISIS [None]
